FAERS Safety Report 5888828-2 (Version None)
Quarter: 2008Q3

REPORT INFORMATION
  Report Type: 
  Country: None (occurrence: None)
  Receive Date: 20080919
  Receipt Date: 20080912
  Transmission Date: 20090109
  Serious: Yes (Hospitalization)
  Sender: FDA-Public Use
  Company Number: DE-BAYER-200823009GPV

PATIENT
  Age: 54 Year
  Sex: Female

DRUGS (3)
  1. BETAFERON [Suspect]
     Indication: MULTIPLE SCLEROSIS
     Route: 058
     Dates: start: 19860101
  2. DELIX [Concomitant]
     Dosage: UNIT DOSE: 5 MG
     Route: 048
     Dates: start: 20080701
  3. NITROGLYCERIN [Concomitant]
     Indication: HYPERTENSION

REACTIONS (7)
  - ALTERED STATE OF CONSCIOUSNESS [None]
  - ANAEMIA [None]
  - HEADACHE [None]
  - HYPERTENSION [None]
  - HYPERTENSIVE ENCEPHALOPATHY [None]
  - NAUSEA [None]
  - VOMITING [None]
